FAERS Safety Report 12866667 (Version 2)
Quarter: 2017Q1

REPORT INFORMATION
  Report Type: Spontaneous
  Country: IT (occurrence: IT)
  Receive Date: 20161020
  Receipt Date: 20170119
  Transmission Date: 20170428
  Serious: Yes (Other)
  Sender: FDA-Public Use
  Company Number: IT-SA-2016SA191429

PATIENT
  Age: 81 Year
  Sex: Female

DRUGS (10)
  1. OLANZAPINE. [Concomitant]
     Active Substance: OLANZAPINE
     Indication: MAJOR DEPRESSION
     Route: 048
     Dates: start: 20160912
  2. MESALAZINE [Suspect]
     Active Substance: MESALAMINE
     Indication: DIVERTICULITIS
     Route: 048
     Dates: start: 20160913, end: 20161011
  3. ANAFRANIL [Concomitant]
     Active Substance: CLOMIPRAMINE HYDROCHLORIDE
     Indication: MAJOR DEPRESSION
     Route: 048
     Dates: start: 20160912
  4. ATENOLOL. [Concomitant]
     Active Substance: ATENOLOL
     Indication: HYPERTENSION
     Route: 048
     Dates: start: 20160912
  5. SMOFKABIVEN [Concomitant]
     Active Substance: UNSPECIFIED INGREDIENT
     Indication: PARENTERAL NUTRITION
     Route: 048
     Dates: start: 20160908
  6. CLEXANE [Suspect]
     Active Substance: ENOXAPARIN SODIUM
     Indication: DEEP VEIN THROMBOSIS
     Route: 058
     Dates: start: 20160907, end: 20161010
  7. OMEPRAZOLE. [Concomitant]
     Active Substance: OMEPRAZOLE
     Indication: ADENOCARCINOMA GASTRIC
     Route: 048
     Dates: start: 20160915
  8. METRONIDAZOLE. [Suspect]
     Active Substance: METRONIDAZOLE
     Indication: DIVERTICULITIS
     Route: 048
     Dates: start: 20160930, end: 20161011
  9. PIPERACILLIN [Concomitant]
     Active Substance: PIPERACILLIN
     Indication: PERITONITIS
     Route: 042
     Dates: start: 20160907
  10. TAZOBACTAM [Concomitant]
     Active Substance: TAZOBACTAM
     Indication: PERITONITIS
     Route: 042
     Dates: start: 20160907

REACTIONS (2)
  - Pancytopenia [Unknown]
  - Thrombocytopenia [Unknown]

NARRATIVE: CASE EVENT DATE: 20161011
